FAERS Safety Report 16290213 (Version 2)
Quarter: 2019Q2

REPORT INFORMATION
  Report Type: Spontaneous
  Country: BY (occurrence: BY)
  Receive Date: 20190509
  Receipt Date: 20190613
  Transmission Date: 20190711
  Serious: Yes (Hospitalization, Other)
  Sender: FDA-Public Use
  Company Number: BY-REGENERON PHARMACEUTICALS, INC.-2019-30489

PATIENT

DRUGS (2)
  1. EYLEA [Suspect]
     Active Substance: AFLIBERCEPT
     Dosage: 0.05 ML, LAST DOSE PRIOR TO EVENT
     Route: 031
     Dates: start: 20190426, end: 20190426
  2. EYLEA [Suspect]
     Active Substance: AFLIBERCEPT
     Indication: DIABETIC RETINAL OEDEMA
     Dosage: 0.05 ML, TOTAL 25 EYLEA DOSE PRIOR THE EVENT
     Route: 031

REACTIONS (7)
  - Blindness unilateral [Unknown]
  - Toxicity to various agents [Unknown]
  - Suspected product quality issue [Unknown]
  - Hypersensitivity [Unknown]
  - Non-infectious endophthalmitis [Unknown]
  - Product storage error [Unknown]
  - Multiple use of single-use product [Unknown]

NARRATIVE: CASE EVENT DATE: 20190427
